FAERS Safety Report 5782489-9 (Version None)
Quarter: 2008Q2

REPORT INFORMATION
  Report Type: 
  Country: None (occurrence: None)
  Receive Date: 20080618
  Receipt Date: 20080612
  Transmission Date: 20081010
  Serious: Yes (Hospitalization)
  Sender: FDA-Public Use
  Company Number: E2020-02890-SPO-JP

PATIENT
  Age: 82 Year
  Sex: Male

DRUGS (9)
  1. ARICEPT [Suspect]
     Dosage: 5 MG, 1 IN 1 D, ORAL
     Route: 048
     Dates: start: 20041201, end: 20080604
  2. BISOLVON (BROMHEXINE HYDROCHLORIDE) [Concomitant]
  3. MAGNESIUM OXIDE (MAGNESIUM OXIDE) [Concomitant]
  4. ISOSORBIDE DINITRATE [Concomitant]
  5. PLAVIX [Concomitant]
  6. LAXOBERON (SODIUM PICOSULFATE) [Concomitant]
  7. AMLODIPINE BESYLATE [Concomitant]
  8. DOXAZOSIN MESYLATE [Concomitant]
  9. PHENOBARBITAL TAB [Concomitant]

REACTIONS (3)
  - ARTHRITIS [None]
  - PAIN IN EXTREMITY [None]
  - RHABDOMYOLYSIS [None]
